FAERS Safety Report 6525854-4 (Version None)
Quarter: 2010Q1

REPORT INFORMATION
  Report Type: 
  Country: None (occurrence: None)
  Receive Date: 20100104
  Receipt Date: 20091228
  Transmission Date: 20100710
  Serious: Yes (Death)
  Sender: FDA-Public Use
  Company Number: B0620996A

PATIENT
  Sex: Female

DRUGS (6)
  1. AUGMENTIN [Suspect]
     Indication: HYDROCHOLECYSTIS
     Route: 048
     Dates: start: 20091113, end: 20091117
  2. ROCEPHIN [Suspect]
     Indication: HYDROCHOLECYSTIS
     Route: 065
     Dates: start: 20091109, end: 20091120
  3. INIPOMP [Suspect]
     Indication: DRUG USE FOR UNKNOWN INDICATION
     Route: 048
     Dates: start: 20091001, end: 20091120
  4. IMOVANE [Suspect]
     Indication: DRUG USE FOR UNKNOWN INDICATION
     Route: 048
     Dates: start: 20091112, end: 20091120
  5. TRIFLUCAN [Suspect]
     Indication: ORAL FUNGAL INFECTION
     Route: 048
     Dates: start: 20091114, end: 20091117
  6. FLAGYL [Concomitant]
     Indication: HYDROCHOLECYSTIS
     Route: 065
     Dates: start: 20091109, end: 20091120

REACTIONS (5)
  - CONDITION AGGRAVATED [None]
  - MUCOUS MEMBRANE DISORDER [None]
  - RASH [None]
  - SKIN DISORDER [None]
  - TOXIC EPIDERMAL NECROLYSIS [None]
